FAERS Safety Report 19160571 (Version 2)
Quarter: 2021Q2

REPORT INFORMATION
  Report Type: Spontaneous
  Country: DE (occurrence: DE)
  Receive Date: 20210420
  Receipt Date: 20210430
  Transmission Date: 20210717
  Serious: Yes (Other)
  Sender: FDA-Public Use
  Company Number: DE-ELI_LILLY_AND_COMPANY-DE202104004026

PATIENT
  Age: 68 Year
  Sex: Female
  Weight: 60 kg

DRUGS (1)
  1. OLUMIANT [Suspect]
     Active Substance: BARICITINIB
     Indication: RHEUMATOID ARTHRITIS
     Dosage: UNK UNK, UNKNOWN
     Route: 065
     Dates: start: 202010

REACTIONS (23)
  - Lymph node pain [Recovered/Resolved]
  - Heart rate increased [Unknown]
  - Emotional poverty [Unknown]
  - Asthenia [Unknown]
  - Arthralgia [Unknown]
  - Pain in extremity [Unknown]
  - Rheumatoid arthritis [Unknown]
  - Dizziness [Unknown]
  - Apathy [Unknown]
  - Peripheral swelling [Unknown]
  - Cognitive disorder [Unknown]
  - Illusion [Unknown]
  - Disturbance in attention [Unknown]
  - Joint stiffness [Unknown]
  - Fatigue [Unknown]
  - Tinnitus [Unknown]
  - Burning sensation [Recovered/Resolved]
  - Myalgia [Recovered/Resolved]
  - Mobility decreased [Unknown]
  - Limb discomfort [Unknown]
  - Cardiovascular disorder [Unknown]
  - Hyperhidrosis [Unknown]
  - Chills [Unknown]

NARRATIVE: CASE EVENT DATE: 2020
